FAERS Safety Report 20568434 (Version 2)
Quarter: 2022Q1

REPORT INFORMATION
  Report Type: Report from Study
  Country: BR (occurrence: BR)
  Receive Date: 20220308
  Receipt Date: 20220329
  Transmission Date: 20220423
  Serious: Yes (Other)
  Sender: FDA-Public Use
  Company Number: BR-NOVARTISPH-NVSC2020BR188147

PATIENT
  Sex: Female

DRUGS (8)
  1. COSENTYX [Suspect]
     Active Substance: SECUKINUMAB
     Indication: Psoriatic arthropathy
     Dosage: 150 MG (1 PEN)
     Route: 065
     Dates: start: 20200527
  2. COSENTYX [Suspect]
     Active Substance: SECUKINUMAB
     Indication: Psoriasis
     Dosage: 150 MG
     Route: 065
     Dates: start: 20200625
  3. COSENTYX [Suspect]
     Active Substance: SECUKINUMAB
     Dosage: 150 MG
     Route: 065
  4. COSENTYX [Suspect]
     Active Substance: SECUKINUMAB
     Dosage: 150 MG
     Route: 065
  5. COSENTYX [Suspect]
     Active Substance: SECUKINUMAB
     Dosage: 300 MG (TWO 150 MG PENS)
     Route: 065
     Dates: start: 202101, end: 202102
  6. COSENTYX [Suspect]
     Active Substance: SECUKINUMAB
     Dosage: 150 MG (1 PEN)
     Route: 065
     Dates: start: 202110
  7. COSENTYX [Suspect]
     Active Substance: SECUKINUMAB
     Dosage: 150 MG (1 PEN)
     Route: 065
     Dates: start: 202110, end: 202111
  8. COSENTYX [Suspect]
     Active Substance: SECUKINUMAB
     Dosage: 150 MG (1 PEN)
     Route: 065
     Dates: start: 20211123

REACTIONS (30)
  - Chest injury [Recovered/Resolved]
  - Injury [Recovered/Resolved]
  - Eye oedema [Recovered/Resolved]
  - Ocular discomfort [Recovered/Resolved]
  - Vision blurred [Recovered/Resolved]
  - Migraine [Recovered/Resolved]
  - Device defective [Unknown]
  - Dehydration [Unknown]
  - Dry skin [Unknown]
  - Psoriasis [Not Recovered/Not Resolved]
  - Burning sensation [Unknown]
  - Skin exfoliation [Unknown]
  - Skin lesion inflammation [Not Recovered/Not Resolved]
  - Skin lesion [Not Recovered/Not Resolved]
  - Skin discolouration [Not Recovered/Not Resolved]
  - Spinal disorder [Not Recovered/Not Resolved]
  - Joint injury [Not Recovered/Not Resolved]
  - Muscle injury [Not Recovered/Not Resolved]
  - Stress [Unknown]
  - Osteitis [Unknown]
  - Inflammation [Unknown]
  - Feeling abnormal [Unknown]
  - Inflammatory pain [Unknown]
  - Arthritis [Unknown]
  - Rebound psoriasis [Unknown]
  - Skin plaque [Not Recovered/Not Resolved]
  - Limb injury [Not Recovered/Not Resolved]
  - Condition aggravated [Unknown]
  - Intentional product use issue [Unknown]
  - Therapeutic product effect incomplete [Recovered/Resolved]

NARRATIVE: CASE EVENT DATE: 20200101
